FAERS Safety Report 5599176-2 (Version None)
Quarter: 2008Q1

REPORT INFORMATION
  Report Type: 
  Country: None (occurrence: None)
  Receive Date: 20080122
  Receipt Date: 20080110
  Transmission Date: 20080703
  Serious: Yes (Other)
  Sender: FDA-Public Use
  Company Number: FR-GILEAD-2008-0014960

PATIENT
  Sex: Female

DRUGS (4)
  1. TRUVADA [Suspect]
  2. SUSTIVA [Concomitant]
  3. COMBIVIR [Concomitant]
  4. VIRACEPT [Concomitant]

REACTIONS (2)
  - ARTHRALGIA [None]
  - PARAESTHESIA [None]
